FAERS Safety Report 6574655-X (Version None)
Quarter: 2010Q1

REPORT INFORMATION
  Report Type: 
  Country: None (occurrence: None)
  Receive Date: 20100201
  Receipt Date: 20100120
  Transmission Date: 20100710
  Serious: Yes (Hospitalization)
  Sender: FDA-Public Use
  Company Number: 005059

PATIENT
  Sex: Male

DRUGS (2)
  1. XYZAL [Suspect]
     Indication: PRURITUS
     Dosage: 3 TABLETS DAILY ORAL
     Route: 048
     Dates: start: 20091101, end: 20091121
  2. PYOSTACINE (PYOSTACINE) (NOT SPECIFIED) [Suspect]
     Indication: STAPHYLOCOCCAL INFECTION
     Dosage: 6 DAILY ORAL
     Route: 048
     Dates: start: 20091026, end: 20091110

REACTIONS (2)
  - OVERDOSE [None]
  - SELF-MEDICATION [None]
